FAERS Safety Report 8252567-3 (Version None)
Quarter: 2012Q2

REPORT INFORMATION
  Report Type: 
  Country: None (occurrence: None)
  Receive Date: 20120402
  Receipt Date: 20120315
  Transmission Date: 20120825
  Serious: Yes (Death)
  Sender: FDA-Public Use
  Company Number: PT-BAXTER-2012BAX000004

PATIENT
  Sex: Female

DRUGS (17)
  1. PHYSIONEAL 40 GLUCOSE 1,36% P/V / 13,6 MG/ML [Suspect]
     Route: 033
     Dates: start: 20110505, end: 20120314
  2. IRON [Concomitant]
     Route: 048
  3. PHYSIONEAL 40 GLUCOSE 1,36% P/V / 13,6 MG/ML [Suspect]
     Route: 033
     Dates: start: 20110505, end: 20120314
  4. IRBESARTAN [Concomitant]
     Route: 048
  5. FOLIC ACID [Concomitant]
     Route: 048
  6. INSULIN [Concomitant]
     Route: 065
  7. CALCITRIOL [Concomitant]
     Route: 048
  8. FUROSEMIDE [Concomitant]
     Route: 048
  9. EPOETIN BETA [Concomitant]
     Route: 058
  10. ISOSORBIDE DINITRATE [Concomitant]
     Route: 048
  11. RILMENIDINE [Concomitant]
     Route: 048
  12. HYDROXYZINE [Concomitant]
     Route: 048
  13. EXTRANEAL [Suspect]
     Route: 033
     Dates: start: 20110505, end: 20120314
  14. OMEPRAZOLE [Concomitant]
  15. CALCIUM CARBONATE [Concomitant]
     Route: 065
  16. NIFEDIPINE [Concomitant]
     Route: 048
  17. LACTULOSE [Concomitant]
     Route: 065

REACTIONS (4)
  - DEATH [None]
  - MALAISE [None]
  - VOMITING [None]
  - ASPIRATION [None]
